FAERS Safety Report 7473222-3 (Version None)
Quarter: 2011Q2

REPORT INFORMATION
  Report Type: 
  Country: None (occurrence: None)
  Receive Date: 20110511
  Receipt Date: 20110505
  Transmission Date: 20111010
  Serious: Yes (Hospitalization, Disabling)
  Sender: FDA-Public Use
  Company Number: B0717303A

PATIENT
  Age: 6 Month
  Sex: Female

DRUGS (1)
  1. RANITIDINE [Suspect]
     Route: 048

REACTIONS (5)
  - OEDEMA MOUTH [None]
  - REGURGITATION [None]
  - HYPERSENSITIVITY [None]
  - PALLOR [None]
  - DYSPNOEA [None]
